FAERS Safety Report 13332309 (Version 2)
Quarter: 2017Q1

REPORT INFORMATION
  Report Type: Spontaneous
  Country: FR (occurrence: FR)
  Receive Date: 20170314
  Receipt Date: 20170324
  Transmission Date: 20170428
  Serious: Yes (Hospitalization, Disabling)
  Sender: FDA-Public Use
  Company Number: FR-ZYDUS-013809

PATIENT
  Age: 80 Year
  Sex: Female

DRUGS (2)
  1. RISEDRONIC ACID [Concomitant]
     Active Substance: RISEDRONIC ACID
     Indication: OSTEOPOROSIS
     Route: 065
  2. LEVOFLOXACIN. [Suspect]
     Active Substance: LEVOFLOXACIN
     Indication: BREATH SOUNDS
     Route: 048
     Dates: start: 20161215, end: 20161220

REACTIONS (6)
  - Tendon disorder [Not Recovered/Not Resolved]
  - Gait disturbance [Not Recovered/Not Resolved]
  - Neuralgia [Not Recovered/Not Resolved]
  - Fall [Unknown]
  - Tendon rupture [Not Recovered/Not Resolved]
  - Tendon pain [Not Recovered/Not Resolved]

NARRATIVE: CASE EVENT DATE: 20161220
